FAERS Safety Report 8772385 (Version 2)
Quarter: 2013Q4

REPORT INFORMATION
  Report Type: Spontaneous
  Country: US (occurrence: US)
  Receive Date: 20120906
  Receipt Date: 20131101
  Transmission Date: 20140711
  Serious: No
  Sender: FDA-Public Use
  Company Number: US-009507513-1209USA001170

PATIENT
  Sex: Female

DRUGS (3)
  1. NASONEX [Suspect]
     Indication: HYPERSENSITIVITY
     Route: 045
  2. ADVAIR [Concomitant]
  3. NITROGLYCERIN [Concomitant]

REACTIONS (2)
  - Oral fungal infection [Not Recovered/Not Resolved]
  - Glaucoma [Not Recovered/Not Resolved]
